FAERS Safety Report 15496699 (Version 3)
Quarter: 2018Q4

REPORT INFORMATION
  Report Type: Spontaneous
  Country: US (occurrence: US)
  Receive Date: 20181014
  Receipt Date: 20181026
  Transmission Date: 20190205
  Serious: Yes (Other)
  Sender: FDA-Public Use
  Company Number: US-BEH-2018095683

PATIENT
  Age: 17 Year
  Sex: Female

DRUGS (2)
  1. HIZENTRA [Suspect]
     Active Substance: HUMAN IMMUNOGLOBULIN G
     Indication: IMMUNODEFICIENCY COMMON VARIABLE
     Dosage: 40 ML, QW
     Route: 058
  2. HIZENTRA [Suspect]
     Active Substance: HUMAN IMMUNOGLOBULIN G
     Dosage: 50 ML, QW
     Route: 058

REACTIONS (10)
  - Respiratory tract infection [Unknown]
  - Ovarian germ cell teratoma benign [Unknown]
  - Purulent discharge [Unknown]
  - Dysarthria [Unknown]
  - Feeling cold [Unknown]
  - Discharge [Unknown]
  - Nail infection [Unknown]
  - Cellulitis [Unknown]
  - Cellulitis [Unknown]
  - Gastrointestinal infection [Unknown]

NARRATIVE: CASE EVENT DATE: 201806
